FAERS Safety Report 4296025-X (Version None)
Quarter: 2004Q1

REPORT INFORMATION
  Report Type: 
  Country: None (occurrence: None)
  Receive Date: 20040212
  Receipt Date: 20040129
  Transmission Date: 20041129
  Serious: Yes (Congenital Anomaly)
  Sender: FDA-Public Use
  Company Number: 2004-BP-00672BP

PATIENT
  Age: 0 Day
  Sex: Male
  Weight: 2.12 kg

DRUGS (3)
  1. VIRAMUNE [Suspect]
     Indication: HIV INFECTION
     Dosage: 400 MG, (200 MG), IU
     Route: 015
     Dates: start: 20030611, end: 20031219
  2. ZIDOVUDINE [Suspect]
     Indication: HIV INFECTION
     Dosage: 600 MG, IU
     Route: 015
     Dates: end: 20031219
  3. TENOFOVIR (TENOFOVIR) [Suspect]
     Indication: HIV INFECTION
     Dosage: 300 MG, IU
     Route: 015
     Dates: end: 20031219

REACTIONS (2)
  - EPIDERMOLYSIS BULLOSA [None]
  - MATERNAL DRUGS AFFECTING FOETUS [None]
